FAERS Safety Report 9664131 (Version 1)
Quarter: 2013Q4

REPORT INFORMATION
  Report Type: Spontaneous
  Country: US (occurrence: None)
  Receive Date: 20131030
  Receipt Date: 20131030
  Transmission Date: 20140711
  Serious: Yes (Other)
  Sender: FDA-Public Use
  Company Number: None

PATIENT
  Sex: Female
  Weight: 61.69 kg

DRUGS (4)
  1. LEVETIRACETAM [Suspect]
     Indication: EPILEPSY
     Dosage: 1250-15000 MG PO, STARTED KEPPRIN PAST 11 YRS
  2. LAMICTAL [Concomitant]
  3. AMITRIPTYLINE [Concomitant]
  4. IMITREX [Concomitant]

REACTIONS (3)
  - Mood swings [None]
  - Irritability [None]
  - Product substitution issue [None]
